FAERS Safety Report 16458871 (Version 1)
Quarter: 2019Q2

REPORT INFORMATION
  Report Type: Spontaneous
  Country: US (occurrence: US)
  Receive Date: 20190620
  Receipt Date: 20190620
  Transmission Date: 20190711
  Serious: No
  Sender: FDA-Public Use
  Company Number: US-THERAPEUTICSMD-2019TMD01049

PATIENT
  Age: 76 Year
  Sex: Female
  Weight: 52.15 kg

DRUGS (8)
  1. IMVEXXY [Suspect]
     Active Substance: ESTRADIOL
     Indication: VULVOVAGINAL DISCOMFORT
     Dosage: 4 ?G, 1X/DAY BEFORE BED
     Route: 067
     Dates: start: 20190516
  2. IMVEXXY [Suspect]
     Active Substance: ESTRADIOL
     Indication: ATROPHIC VULVOVAGINITIS
  3. ELIQUIS [Concomitant]
     Active Substance: APIXABAN
  4. IMVEXXY [Suspect]
     Active Substance: ESTRADIOL
     Indication: VAGINAL PROLAPSE
  5. METOPROLOL. [Concomitant]
     Active Substance: METOPROLOL
  6. UNSPECIFIED DECONGESTANT [Concomitant]
  7. UNSPECIFIED NASAL SPRAY [Concomitant]
     Active Substance: UNSPECIFIED INGREDIENT
     Dosage: UNK, AS NEEDED
  8. IMVEXXY [Suspect]
     Active Substance: ESTRADIOL
     Indication: VULVOVAGINAL DRYNESS

REACTIONS (6)
  - Vulvovaginal pain [Not Recovered/Not Resolved]
  - Product residue present [Not Recovered/Not Resolved]
  - Drug ineffective for unapproved indication [Not Recovered/Not Resolved]
  - Circumstance or information capable of leading to medication error [Not Recovered/Not Resolved]
  - Product solubility abnormal [Not Recovered/Not Resolved]
  - Product use complaint [Not Recovered/Not Resolved]

NARRATIVE: CASE EVENT DATE: 20190516
